FAERS Safety Report 8366093-4 (Version None)
Quarter: 2012Q2

REPORT INFORMATION
  Report Type: 
  Country: None (occurrence: None)
  Receive Date: 20120515
  Receipt Date: 20120426
  Transmission Date: 20120825
  Serious: Yes (Disabling)
  Sender: FDA-Public Use
  Company Number: ZYD-12-AE-099

PATIENT
  Age: 33 Year
  Sex: Male

DRUGS (1)
  1. RISPERIDONE 0.5 MG TABLETS (ZYDRUS) [Suspect]
     Indication: DRUG WITHDRAWAL SYNDROME
     Dosage: 1 MG - BID - ORAL
     Route: 048
     Dates: start: 20120131, end: 20120407

REACTIONS (9)
  - WEIGHT DECREASED [None]
  - NAUSEA [None]
  - FATIGUE [None]
  - ANXIETY [None]
  - IMPAIRED WORK ABILITY [None]
  - APHAGIA [None]
  - COLD SWEAT [None]
  - HYPERHIDROSIS [None]
  - FEELING OF BODY TEMPERATURE CHANGE [None]
